FAERS Safety Report 9926146 (Version 2)
Quarter: 2014Q1

REPORT INFORMATION
  Report Type: Report from Study
  Country: US (occurrence: US)
  Receive Date: 20140226
  Receipt Date: 20140310
  Transmission Date: 20141002
  Serious: Yes (Hospitalization)
  Sender: FDA-Public Use
  Company Number: US-ACTELION-A-NJ2014-95083

PATIENT
  Age: 53 Year
  Sex: Female

DRUGS (1)
  1. TRACLEER [Suspect]
     Indication: PULMONARY ARTERIAL HYPERTENSION
     Dosage: UNK
     Route: 048
     Dates: start: 200405

REACTIONS (4)
  - Renal haematoma [Recovering/Resolving]
  - Renal pain [Recovering/Resolving]
  - Renal tubular necrosis [Recovering/Resolving]
  - Dialysis [Recovering/Resolving]
